FAERS Safety Report 24438850 (Version 1)
Quarter: 2024Q4

REPORT INFORMATION
  Report Type: Report from Study
  Country: DE (occurrence: DE)
  Receive Date: 20241015
  Receipt Date: 20241015
  Transmission Date: 20250114
  Serious: Yes (Hospitalization)
  Sender: ABBVIE
  Company Number: DE-ABBVIE-5957618

PATIENT
  Age: 66 Year
  Sex: Female

DRUGS (4)
  1. HUMIRA [Suspect]
     Active Substance: ADALIMUMAB
     Indication: Rheumatoid arthritis
     Route: 058
     Dates: start: 201801, end: 201802
  2. LEFL [Concomitant]
     Indication: Rheumatoid arthritis
     Dosage: START DATE TEXT: BEFORE 09 MAY 2017 ?STOP DATE TEXT: BETWEEN 07 SEP 2017 AND 09 JAN 2018
  3. OLUMIANT [Concomitant]
     Active Substance: BARICITINIB
     Indication: Product used for unknown indication
     Dates: start: 201811, end: 201812
  4. OLUMIANT [Concomitant]
     Active Substance: BARICITINIB
     Indication: Product used for unknown indication
     Dates: start: 201902, end: 201903

REACTIONS (3)
  - Internal fixation of fracture [Unknown]
  - Spinal pain [Unknown]
  - Hypoaesthesia [Unknown]

NARRATIVE: CASE EVENT DATE: 20240205
